FAERS Safety Report 5326370-8 (Version None)
Quarter: 2007Q2

REPORT INFORMATION
  Report Type: 
  Country: None (occurrence: None)
  Receive Date: 20070516
  Receipt Date: 20070509
  Transmission Date: 20071010
  Serious: Yes (Other)
  Sender: FDA-Public Use
  Company Number: B0470581A

PATIENT
  Age: 50 Year
  Sex: Female
  Weight: 70 kg

DRUGS (4)
  1. MALANIL [Suspect]
     Indication: MALARIA PROPHYLAXIS
     Dosage: 1TAB SINGLE DOSE
     Dates: start: 20070507, end: 20070507
  2. CYMBALTA [Concomitant]
     Route: 065
  3. ESTROFEM [Concomitant]
     Dosage: 1MG UNKNOWN
     Route: 065
  4. REDUCTIL [Concomitant]
     Dosage: 10MG UNKNOWN
     Route: 065
     Dates: start: 20070101

REACTIONS (5)
  - MYALGIA [None]
  - OEDEMA MOUTH [None]
  - PRURITUS [None]
  - TENDONITIS [None]
  - URTICARIA [None]
